FAERS Safety Report 16060743 (Version 11)
Quarter: 2020Q2

REPORT INFORMATION
  Report Type: Spontaneous
  Country: CA (occurrence: CA)
  Receive Date: 20190312
  Receipt Date: 20200617
  Transmission Date: 20200713
  Serious: Yes (Other)
  Sender: FDA-Public Use
  Company Number: CA-CELLTRION INC.-2018CA017918

PATIENT

DRUGS (31)
  1. INFLECTRA [Suspect]
     Active Substance: INFLIXIMAB-DYYB
     Dosage: 315 MG, EVERY 8 WEEKS
     Route: 042
     Dates: start: 20190114, end: 20190114
  2. ONDANSETRON [Concomitant]
     Active Substance: ONDANSETRON
     Dosage: 4 MG, 3X/DAY
     Dates: start: 2016
  3. FOLIC ACID. [Concomitant]
     Active Substance: FOLIC ACID
     Dosage: 5 MG, WEEKLY
  4. APO-TRAZODONE [Concomitant]
     Active Substance: TRAZODONE HYDROCHLORIDE
     Dosage: 100 MG, UNK
  5. IMOVANE [Concomitant]
     Active Substance: ZOPICLONE
     Dosage: 7.5 MG, UNK
  6. DICLECTIN [Concomitant]
     Active Substance: DOXYLAMINE SUCCINATE\PYRIDOXINE HYDROCHLORIDE
     Dosage: 10 MG, UNK
  7. DOXEPIN [Concomitant]
     Active Substance: DOXEPIN
     Dosage: 75 MG, 1X/DAY
     Dates: start: 2015
  8. HYDROMORPH CONTIN [Concomitant]
     Active Substance: HYDROMORPHONE
     Dosage: 30 MG, UNK
  9. INFLECTRA [Suspect]
     Active Substance: INFLIXIMAB-DYYB
     Indication: ANKYLOSING SPONDYLITIS
     Dosage: 600 MG, 0, 2, 6, THEN EVERY 8 WEEKS
     Route: 042
     Dates: start: 20180129, end: 20180910
  10. INFLECTRA [Suspect]
     Active Substance: INFLIXIMAB-DYYB
     Indication: RHEUMATOID ARTHRITIS
     Dosage: 600 MG, 0, 2, 6, THEN EVERY 8 WEEKS
     Route: 042
     Dates: start: 20180508, end: 20180508
  11. INFLECTRA [Suspect]
     Active Substance: INFLIXIMAB-DYYB
     Dosage: 600 MG Q 6 WEEKS
     Route: 042
     Dates: start: 20181022, end: 20190225
  12. INFLECTRA [Suspect]
     Active Substance: INFLIXIMAB-DYYB
     Dosage: 600 MG EVERY 4 WEEKS
     Route: 042
     Dates: start: 20190326
  13. INFLECTRA [Suspect]
     Active Substance: INFLIXIMAB-DYYB
     Dosage: 600 MG EVERY 4 WEEKS
     Route: 042
     Dates: start: 20191009
  14. INFLECTRA [Suspect]
     Active Substance: INFLIXIMAB-DYYB
     Dosage: 600 MG EVERY 4 WEEKS
     Route: 042
     Dates: start: 20200610
  15. CANNABIS [Concomitant]
     Active Substance: CANNABIS SATIVA SUBSP. INDICA TOP
     Dosage: UNK
     Route: 065
  16. PREDNISONE. [Concomitant]
     Active Substance: PREDNISONE
     Dosage: 1-20 MG QD (1X/DAY) MANY COURSES
     Route: 048
     Dates: start: 1999
  17. DICLECTIN [Concomitant]
     Active Substance: DOXYLAMINE SUCCINATE\PYRIDOXINE HYDROCHLORIDE
     Dosage: 20 MG, 1X/DAY
     Dates: start: 1999
  18. DILAUDID [Concomitant]
     Active Substance: HYDROMORPHONE HYDROCHLORIDE
     Dosage: 4-5MG 1X/DAY
  19. PANTOLOC [PANTOPRAZOLE] [Concomitant]
     Active Substance: PANTOPRAZOLE SODIUM
     Dosage: 40 MG, 1X/DAY
     Dates: start: 2009
  20. PROLIA [Concomitant]
     Active Substance: DENOSUMAB
     Dosage: 30 MG/ML, UNK
  21. INFLECTRA [Suspect]
     Active Substance: INFLIXIMAB-DYYB
     Dosage: 315 MG, EVERY 6 WEEKS
     Route: 042
  22. INFLECTRA [Suspect]
     Active Substance: INFLIXIMAB-DYYB
     Dosage: 600 MG EVERY 4 WEEKS
     Route: 042
     Dates: start: 20190814
  23. ATIVAN [Concomitant]
     Active Substance: LORAZEPAM
     Dosage: 1 MG, UNK
  24. METHOTREXATE. [Concomitant]
     Active Substance: METHOTREXATE
     Dosage: 10 DF, WEEKLY
     Route: 048
     Dates: start: 1999
  25. HYDROMORPHONE [Concomitant]
     Active Substance: HYDROMORPHONE
     Dosage: 18 MG, 1X/DAY
  26. INFLECTRA [Suspect]
     Active Substance: INFLIXIMAB-DYYB
     Dosage: 315 MG, EVERY 8 WEEKS
     Route: 042
     Dates: start: 20180716, end: 20180716
  27. INFLECTRA [Suspect]
     Active Substance: INFLIXIMAB-DYYB
     Dosage: 315 MG, EVERY 8 WEEKS
     Route: 042
     Dates: start: 20190225, end: 20190225
  28. INFLECTRA [Suspect]
     Active Substance: INFLIXIMAB-DYYB
     Dosage: 315 MG, EVERY 8 WEEKS
     Route: 042
     Dates: start: 20180910, end: 20180910
  29. INFLECTRA [Suspect]
     Active Substance: INFLIXIMAB-DYYB
     Dosage: 600 MG EVERY 4 WEEKS
     Route: 042
     Dates: start: 20190913
  30. SALAGEN [Concomitant]
     Active Substance: PILOCARPINE HYDROCHLORIDE
     Dosage: UNK
  31. VITAMIN D NOS [Concomitant]
     Active Substance: VITAMIN D NOS
     Dosage: 50000 IU, WEEKLY

REACTIONS (14)
  - Blood pressure increased [Unknown]
  - Sleep disorder [Recovering/Resolving]
  - Intentional product use issue [Unknown]
  - Heart rate decreased [Unknown]
  - Myalgia [Unknown]
  - Therapeutic product effect incomplete [Unknown]
  - Condition aggravated [Unknown]
  - Weight increased [Unknown]
  - Therapeutic response shortened [Not Recovered/Not Resolved]
  - Musculoskeletal pain [Unknown]
  - Arthralgia [Recovering/Resolving]
  - Off label use [Unknown]
  - Inappropriate schedule of product administration [Unknown]
  - Groin pain [Unknown]

NARRATIVE: CASE EVENT DATE: 20180129
